FAERS Safety Report 4305701-1 (Version None)
Quarter: 2004Q1

REPORT INFORMATION
  Report Type: 
  Country: None (occurrence: None)
  Receive Date: 20040225
  Receipt Date: 20040213
  Transmission Date: 20041129
  Serious: No
  Sender: FDA-Public Use
  Company Number: 04P-163-0250594-00

PATIENT
  Sex: Male

DRUGS (1)
  1. KALETRA [Suspect]
     Indication: HIV INFECTION

REACTIONS (1)
  - MYOCARDIAL INFARCTION [None]
